FAERS Safety Report 10643725 (Version 1)
Quarter: 2014Q4

REPORT INFORMATION
  Report Type: Spontaneous
  Country: US (occurrence: US)
  Receive Date: 20141210
  Receipt Date: 20141210
  Transmission Date: 20150529
  Serious: No
  Sender: FDA-Public Use
  Company Number: US-NOVEN-14US009591

PATIENT
  Age: 49 Year
  Sex: Male

DRUGS (4)
  1. PRILOSEC [Concomitant]
     Active Substance: OMEPRAZOLE MAGNESIUM
     Dosage: UNK
  2. BENAZEPRIL HCL [Concomitant]
     Active Substance: BENAZEPRIL HYDROCHLORIDE
     Dosage: UNK
  3. FENTANYL. [Suspect]
     Active Substance: FENTANYL
     Indication: PSORIATIC ARTHROPATHY
     Dosage: 2X 100UG/HR, Q 3DAYS
     Route: 062
     Dates: start: 2012
  4. PERCOCET [Concomitant]
     Active Substance: ACETAMINOPHEN\OXYCODONE HYDROCHLORIDE
     Dosage: UNK

REACTIONS (6)
  - Inadequate analgesia [Recovered/Resolved]
  - Blepharospasm [Recovered/Resolved]
  - Product quality issue [Recovered/Resolved]
  - Drug administration error [Not Recovered/Not Resolved]
  - Muscle spasticity [Recovered/Resolved]
  - Drug withdrawal syndrome [Recovered/Resolved]

NARRATIVE: CASE EVENT DATE: 20140508
